FAERS Safety Report 9325476 (Version 1)
Quarter: 2013Q2

REPORT INFORMATION
  Report Type: Spontaneous
  Country: US (occurrence: None)
  Receive Date: 20130528
  Receipt Date: 20130528
  Transmission Date: 20140414
  Serious: Yes (Other)
  Sender: FDA-Public Use
  Company Number: USA/USA/13/0029579

PATIENT
  Age: 62 Year
  Sex: Male

DRUGS (9)
  1. AMLODIPINE BESYLATE [Suspect]
     Indication: PRODUCT USED FOR UNKNOWN INDICATION
  2. METOPROLOL SUCCINATE (METOPROLOL SUCCINATE) [Concomitant]
  3. CLOPIDOGREL BISULFATE (CLOPIDOGREL) [Concomitant]
  4. SIMVASTATIN (SIMVASTATIN) [Concomitant]
  5. RANITIDINE (RANITIDINE HYDROCHLORIDE) [Concomitant]
  6. ISOSORBIDE DINITRATE (ISOSOBIDE DINITRATE) [Concomitant]
  7. LISINOPRIL (LISINOPRIL) [Concomitant]
  8. ASPIRIN (ACETYLSALICYCLIC ACID) [Concomitant]
  9. FENOFIBRATE (FENOFIBRATE) [Concomitant]

REACTIONS (1)
  - Cutaneous lupus erythematosus [None]
